FAERS Safety Report 9102053 (Version 4)
Quarter: 2013Q4

REPORT INFORMATION
  Report Type: Spontaneous
  Country: TR (occurrence: TR)
  Receive Date: 20130218
  Receipt Date: 20131011
  Transmission Date: 20140711
  Serious: Yes (Hospitalization, Other)
  Sender: FDA-Public Use
  Company Number: TR-ROCHE-1191668

PATIENT
  Age: 57 Year
  Sex: Male

DRUGS (2)
  1. XOLAIR [Suspect]
     Indication: ASTHMA
     Dosage: 375-300 MG
     Route: 065
  2. HUMALOG [Concomitant]
     Dosage: 30 UNITS BEFORE BREAKFAST AND 4 UNITS BEFORE SUPPER
     Route: 065

REACTIONS (11)
  - Asthma [Unknown]
  - Dyspnoea [Unknown]
  - Cyanosis [Unknown]
  - Tachypnoea [Unknown]
  - Wheezing [Unknown]
  - Body mass index increased [Unknown]
  - C-reactive protein decreased [Unknown]
  - Eosinophil cationic protein decreased [Unknown]
  - Mycotic allergy [Unknown]
  - Cough [Unknown]
  - Hyperglycaemia [Recovered/Resolved]
